FAERS Safety Report 21968883 (Version 1)
Quarter: 2023Q1

REPORT INFORMATION
  Report Type: Spontaneous
  Country: CN (occurrence: None)
  Receive Date: 20230208
  Receipt Date: 20230208
  Transmission Date: 20230418
  Serious: Yes (Hospitalization)
  Sender: FDA-Public Use
  Company Number: CN-Merck Healthcare KGaA-9380943

PATIENT
  Age: 32 Year
  Sex: Female
  Weight: 55 kg

DRUGS (11)
  1. CETROTIDE [Suspect]
     Active Substance: CETRORELIX ACETATE
     Indication: Ovulation induction
     Route: 058
     Dates: start: 20230109, end: 20230112
  2. CETROTIDE [Suspect]
     Active Substance: CETRORELIX ACETATE
     Route: 058
     Dates: start: 20230115, end: 20230116
  3. UROFOLLITROPIN [Suspect]
     Active Substance: UROFOLLITROPIN
     Indication: Ovulation induction
     Route: 030
     Dates: start: 20230105, end: 20230108
  4. UROFOLLITROPIN [Suspect]
     Active Substance: UROFOLLITROPIN
     Route: 030
     Dates: start: 20230109, end: 20230114
  5. UROFOLLITROPIN [Suspect]
     Active Substance: UROFOLLITROPIN
     Route: 030
     Dates: start: 20230115, end: 20230116
  6. MENOTROPINS [Suspect]
     Active Substance: MENOTROPINS
     Indication: Ovulation induction
     Route: 030
     Dates: start: 20230109, end: 20230115
  7. TRIPTORELIN ACETATE [Suspect]
     Active Substance: TRIPTORELIN ACETATE
     Indication: Ovulation induction
     Route: 058
     Dates: start: 20230116, end: 20230116
  8. CHORIONIC GONADOTROPHIN [Suspect]
     Active Substance: CHORIOGONADOTROPIN ALFA
     Indication: Ovulation induction
     Route: 030
     Dates: start: 20230116, end: 20230116
  9. SODIUM CHLORIDE [Concomitant]
     Active Substance: SODIUM CHLORIDE
     Indication: Vehicle solution use
     Dosage: (0.9 PERCENT, 10 ML)
     Route: 030
     Dates: start: 20230116, end: 20230116
  10. CETRORELIX ACETATE [Concomitant]
     Active Substance: CETRORELIX ACETATE
     Indication: Ovulation induction
     Route: 058
     Dates: start: 20230109, end: 20230112
  11. CETRORELIX ACETATE [Concomitant]
     Active Substance: CETRORELIX ACETATE
     Route: 058
     Dates: start: 20230115, end: 20230116

REACTIONS (5)
  - Abdominal distension [Recovering/Resolving]
  - Abdominal pain [Recovering/Resolving]
  - Vomiting [Recovering/Resolving]
  - Oliguria [Recovering/Resolving]
  - Transaminases increased [Recovering/Resolving]

NARRATIVE: CASE EVENT DATE: 20230118
